FAERS Safety Report 15923700 (Version 1)
Quarter: 2019Q1

REPORT INFORMATION
  Report Type: Spontaneous
  Country: CN (occurrence: CN)
  Receive Date: 20190206
  Receipt Date: 20190206
  Transmission Date: 20190417
  Serious: Yes (Other)
  Sender: FDA-Public Use
  Company Number: CN-GLAXOSMITHKLINE-CN2019019655

PATIENT
  Age: 63 Year
  Sex: Male

DRUGS (1)
  1. DICLOPHENAC [Suspect]
     Active Substance: DICLOFENAC SODIUM
     Indication: GOUT
     Dosage: 75 MG, BID
     Route: 065

REACTIONS (5)
  - Vomiting [Unknown]
  - Urinary incontinence [Unknown]
  - Nausea [Unknown]
  - Acute kidney injury [Unknown]
  - Chest discomfort [Unknown]
